FAERS Safety Report 23844492 (Version 2)
Quarter: 2024Q2

REPORT INFORMATION
  Report Type: Spontaneous
  Country: CN (occurrence: CN)
  Receive Date: 20240510
  Receipt Date: 20240606
  Transmission Date: 20240716
  Serious: Yes (Death, Life-Threatening, Hospitalization, Other)
  Sender: FDA-Public Use
  Company Number: CN-Accord-423199

PATIENT
  Age: 57 Year
  Sex: Male

DRUGS (3)
  1. BORTEZOMIB [Suspect]
     Active Substance: BORTEZOMIB
     Indication: Plasma cell myeloma
     Dates: start: 2021
  2. DEXAMETHASONE [Suspect]
     Active Substance: DEXAMETHASONE
     Indication: Plasma cell myeloma
     Dosage: TWICE WEEKLY
     Dates: start: 2021
  3. CYCLOPHOSPHAMIDE [Suspect]
     Active Substance: CYCLOPHOSPHAMIDE
     Indication: Plasma cell myeloma
     Dosage: FOUR TABLETS TWICE WEEKLY
     Dates: start: 2021

REACTIONS (14)
  - Myelosuppression [Unknown]
  - Cytomegalovirus infection [Fatal]
  - Epstein-Barr virus infection [Fatal]
  - Herpes zoster disseminated [Fatal]
  - Septic shock [Fatal]
  - Klebsiella sepsis [Fatal]
  - Pneumonia acinetobacter [Fatal]
  - Aspergillus infection [Fatal]
  - Candida infection [Fatal]
  - Pneumonia viral [Fatal]
  - Acute respiratory distress syndrome [Fatal]
  - Cardiac failure [Fatal]
  - Infection [Fatal]
  - Gastrointestinal haemorrhage [Unknown]

NARRATIVE: CASE EVENT DATE: 20230101
